FAERS Safety Report 7235026-6 (Version None)
Quarter: 2011Q1

REPORT INFORMATION
  Report Type: 
  Country: None (occurrence: None)
  Receive Date: 20110114
  Receipt Date: 20110114
  Transmission Date: 20110831
  Serious: Yes (Life-Threatening, Hospitalization, Disabling, Other)
  Sender: FDA-Public Use
  Company Number: None

PATIENT
  Age: 51 Year
  Sex: Female
  Weight: 68.9467 kg

DRUGS (2)
  1. SYNTHROID [Suspect]
  2. LEVOTHYROXINE SODIUM [Suspect]
     Indication: HYPOTHYROIDISM
     Dosage: 1 TABLET 25MCG DAILY PO
     Route: 048
     Dates: start: 20101218, end: 20110105

REACTIONS (11)
  - DIZZINESS [None]
  - HEART RATE IRREGULAR [None]
  - REACTION TO DRUG EXCIPIENTS [None]
  - MULTIPLE INJURIES [None]
  - SWELLING [None]
  - LOSS OF CONSCIOUSNESS [None]
  - WOUND HAEMORRHAGE [None]
  - DYSPNOEA [None]
  - PALPITATIONS [None]
  - HEAD INJURY [None]
  - ECONOMIC PROBLEM [None]
